FAERS Safety Report 11498106 (Version 1)
Quarter: 2015Q3

REPORT INFORMATION
  Report Type: Spontaneous
  Country: US (occurrence: US)
  Receive Date: 20150911
  Receipt Date: 20150911
  Transmission Date: 20151125
  Serious: Yes (Hospitalization, Other)
  Sender: FDA-Public Use
  Company Number: US-ASTRAZENECA-2004UW24438

PATIENT
  Age: 730 Month
  Sex: Female
  Weight: 72.6 kg

DRUGS (17)
  1. RHINOCORT AQUA [Suspect]
     Active Substance: BUDESONIDE
     Indication: MULTIPLE ALLERGIES
     Route: 045
  2. SEREVENT DISKUS [Concomitant]
     Active Substance: SALMETEROL XINAFOATE
  3. RHINOCORT AQUA [Suspect]
     Active Substance: BUDESONIDE
     Indication: NASAL POLYPS
     Dosage: TWO SPRAYS EACH NOSTRIL TWICE DAILY, 32 MCG 120 METER SPRAY/UNIT
     Route: 045
     Dates: start: 200011, end: 20041119
  4. PULMICORT TURBUHALER [Suspect]
     Active Substance: BUDESONIDE
     Indication: ASTHMA
     Dosage: EVERY OTHER DAY
     Route: 055
     Dates: start: 200411
  5. SINGULAIR [Concomitant]
     Active Substance: MONTELUKAST SODIUM
  6. PREDNISONE. [Concomitant]
     Active Substance: PREDNISONE
     Indication: ASTHMA
     Dates: start: 200011, end: 200411
  7. RHINOCORT AQUA [Suspect]
     Active Substance: BUDESONIDE
     Indication: MULTIPLE ALLERGIES
     Dosage: TWO SPRAYS EACH NOSTRIL TWICE DAILY, 32 MCG 120 METER SPRAY/UNIT
     Route: 045
     Dates: start: 200011, end: 20041119
  8. PULMICORT TURBUHALER [Suspect]
     Active Substance: BUDESONIDE
     Indication: ASTHMA
     Dosage: 200 MCG PER INHALATION, 2 PUFFS, THREE TIMES A DAY
     Route: 055
     Dates: start: 200310, end: 200411
  9. HERBAL SUPPLEMENTS [Concomitant]
  10. SALINE NASAL SPRAY [Concomitant]
     Active Substance: SODIUM CHLORIDE
  11. CALCIUM [Concomitant]
     Active Substance: CALCIUM
  12. QVAR [Concomitant]
     Active Substance: BECLOMETHASONE DIPROPIONATE
     Dosage: EVERY OTHER DAY
     Dates: start: 200411
  13. HYDROCORTISONE. [Concomitant]
     Active Substance: HYDROCORTISONE
     Route: 048
     Dates: start: 200411
  14. RHINOCORT AQUA [Suspect]
     Active Substance: BUDESONIDE
     Indication: MULTIPLE ALLERGIES
     Dosage: 2 SPARY AT NIGHT
     Route: 045
     Dates: end: 20011224
  15. RHINOCORT AQUA [Suspect]
     Active Substance: BUDESONIDE
     Indication: NASAL POLYPS
     Route: 045
  16. PULMICORT TURBUHALER [Suspect]
     Active Substance: BUDESONIDE
     Indication: ASTHMA
     Dosage: 200 MCG PER INHALATION, 2 PUFFS, TWO TIMES A DAY
     Route: 055
     Dates: start: 200310, end: 200312
  17. RHINOCORT AQUA [Suspect]
     Active Substance: BUDESONIDE
     Indication: NASAL POLYPS
     Dosage: 2 SPARY AT NIGHT
     Route: 045
     Dates: end: 20011224

REACTIONS (8)
  - Cataract [Unknown]
  - Myalgia [Recovered/Resolved]
  - Tongue fungal infection [Unknown]
  - Asthma [Unknown]
  - Cough [Not Recovered/Not Resolved]
  - Wheezing [Unknown]
  - Drug dose omission [Unknown]
  - Back pain [Unknown]

NARRATIVE: CASE EVENT DATE: 200312
